FAERS Safety Report 4794674-3 (Version None)
Quarter: 2005Q3

REPORT INFORMATION
  Report Type: 
  Country: None (occurrence: None)
  Receive Date: 20050914
  Receipt Date: 20040927
  Transmission Date: 20060218
  Serious: Yes (Death, Hospitalization)
  Sender: FDA-Public Use
  Company Number: 163-20785-04090732

PATIENT
  Age: 70 Year
  Sex: Male
  Weight: 81.8289 kg

DRUGS (3)
  1. THALOMID [Suspect]
     Indication: PANCREATIC CARCINOMA
     Dosage: 300 MG, DAILY, ORAL : 200MG - 500MG, DAILY, ORAL
     Route: 048
     Dates: start: 20040817, end: 20040101
  2. THALOMID [Suspect]
     Indication: PANCREATIC CARCINOMA
     Dosage: 300 MG, DAILY, ORAL : 200MG - 500MG, DAILY, ORAL
     Route: 048
     Dates: start: 20040101, end: 20040901
  3. GEMCITABINE (GEMCITABINE) [Suspect]
     Indication: PANCREATIC CARCINOMA
     Dosage: 1000 MG/M2, DAILY DAYS 15 AND 18, ORAL
     Route: 048
     Dates: start: 20040817, end: 20040101

REACTIONS (6)
  - ANOREXIA [None]
  - ASTHENIA [None]
  - DEATH [None]
  - NAUSEA [None]
  - VOMITING [None]
  - WEIGHT DECREASED [None]
